FAERS Safety Report 9857459 (Version 4)
Quarter: 2015Q2

REPORT INFORMATION
  Report Type: Report from Study
  Country: FR (occurrence: FR)
  Receive Date: 20140131
  Receipt Date: 20150603
  Transmission Date: 20150821
  Serious: Yes (Hospitalization, Other)
  Sender: FDA-Public Use
  Company Number: FR-ROCHE-1164871

PATIENT
  Age: 67 Year
  Sex: Female

DRUGS (8)
  1. RITUXIMAB [Suspect]
     Active Substance: RITUXIMAB
     Dosage: D15
     Route: 065
     Dates: start: 20090212
  2. RITUXIMAB [Suspect]
     Active Substance: RITUXIMAB
     Dosage: D1
     Route: 065
     Dates: start: 20100105
  3. METHOTREXATE [Concomitant]
     Active Substance: METHOTREXATE
     Route: 065
  4. RITUXIMAB [Suspect]
     Active Substance: RITUXIMAB
     Indication: RHEUMATOID ARTHRITIS
     Dosage: (D1)
     Route: 065
     Dates: start: 20090127
  5. METHOTREXATE [Concomitant]
     Active Substance: METHOTREXATE
     Route: 065
  6. CORTANCYL [Concomitant]
     Active Substance: PREDNISONE
     Route: 065
  7. RITUXIMAB [Suspect]
     Active Substance: RITUXIMAB
     Dosage: D15
     Route: 065
     Dates: start: 20100119
  8. TOCILIZUMAB [Concomitant]
     Active Substance: TOCILIZUMAB
     Route: 065
     Dates: start: 20100803

REACTIONS (8)
  - Ileal perforation [Unknown]
  - Nasopharyngitis [Recovered/Resolved]
  - Epstein-Barr virus associated lymphoma [Recovered/Resolved]
  - Splenic cyst [Recovered/Resolved]
  - Peritonitis [Unknown]
  - Basal cell carcinoma [Recovered/Resolved]
  - Cyst drainage [Recovered/Resolved]
  - Asthenia [Recovered/Resolved]

NARRATIVE: CASE EVENT DATE: 20090201
